FAERS Safety Report 6441570-1 (Version None)
Quarter: 2009Q4

REPORT INFORMATION
  Report Type: 
  Country: None (occurrence: None)
  Receive Date: 20091116
  Receipt Date: 20091102
  Transmission Date: 20100525
  Serious: Yes (Death, Life-Threatening, Hospitalization)
  Sender: FDA-Public Use
  Company Number: US-JNJFOC-20090708500

PATIENT
  Sex: Male
  Weight: 47.17 kg

DRUGS (15)
  1. DARUNAVIR [Suspect]
     Route: 048
  2. DARUNAVIR [Suspect]
     Indication: HIV INFECTION
     Route: 048
  3. RITONAVIR [Suspect]
     Route: 048
  4. RITONAVIR [Suspect]
     Indication: HIV INFECTION
     Route: 048
  5. RALTEGRAVIR [Suspect]
     Route: 048
  6. RALTEGRAVIR [Suspect]
     Indication: HIV INFECTION
     Route: 048
  7. ALINIA [Concomitant]
  8. DAPSONE [Concomitant]
  9. FLUCONAZOLE [Concomitant]
  10. NYSTATIN [Concomitant]
  11. DIPHENOXYLATE HCL + ATROPINE SULFATE [Concomitant]
  12. DOXYCYCLINE [Concomitant]
  13. KLOR-CON [Concomitant]
  14. PHENERGAN HCL [Concomitant]
  15. ZITHROMAX [Concomitant]

REACTIONS (5)
  - ANAEMIA [None]
  - HYPOGLYCAEMIA [None]
  - HYPOTHYROIDISM [None]
  - PNEUMONIA [None]
  - RENAL FAILURE ACUTE [None]
